FAERS Safety Report 16786685 (Version 1)
Quarter: 2019Q3

REPORT INFORMATION
  Report Type: Spontaneous
  Country: US (occurrence: US)
  Receive Date: 20190718
  Receipt Date: 20190718
  Transmission Date: 20191005
  Serious: No
  Sender: FDA-Public Use
  Company Number: None

PATIENT
  Age: 88 Year
  Sex: Female

DRUGS (1)
  1. CAPECITABINE TAB 500MG [Suspect]
     Active Substance: CAPECITABINE
     Route: 048
     Dates: start: 20190425

REACTIONS (5)
  - Somnolence [None]
  - Hypogeusia [None]
  - Faeces discoloured [None]
  - Abnormal faeces [None]
  - Diarrhoea [None]

NARRATIVE: CASE EVENT DATE: 20190711
